FAERS Safety Report 8267565-3 (Version None)
Quarter: 2012Q2

REPORT INFORMATION
  Report Type: 
  Country: None (occurrence: None)
  Receive Date: 20120405
  Receipt Date: 20120405
  Transmission Date: 20120825
  Serious: Yes (Hospitalization)
  Sender: FDA-Public Use
  Company Number: None

PATIENT
  Age: 62 Year
  Sex: Male
  Weight: 76.4 kg

DRUGS (2)
  1. CYCLOBENAZPRINE [Suspect]
     Indication: MUSCLE SPASMS
     Dosage: 10 MG TID PO
     Route: 048
     Dates: start: 20120207, end: 20120308
  2. METHYLPHENIDATE [Suspect]
     Indication: ASTHENIA
     Dosage: 10 MG EVERY DAY PO
     Route: 048
     Dates: start: 20111221

REACTIONS (3)
  - MENTAL STATUS CHANGES [None]
  - CONFUSIONAL STATE [None]
  - FALL [None]
